FAERS Safety Report 13347743 (Version 1)
Quarter: 2017Q1

REPORT INFORMATION
  Report Type: Spontaneous
  Country: NZ (occurrence: NZ)
  Receive Date: 20170317
  Receipt Date: 20170317
  Transmission Date: 20170428
  Serious: Yes (Other)
  Sender: FDA-Public Use
  Company Number: NZ-ABBVIE-17P-118-1909652-00

PATIENT
  Sex: Female

DRUGS (1)
  1. EPILIM EC [Suspect]
     Active Substance: VALPROATE SODIUM
     Indication: SEIZURE
     Route: 065

REACTIONS (5)
  - Autism [Unknown]
  - Speech disorder [Unknown]
  - Cerebral disorder [Unknown]
  - Gait disturbance [Unknown]
  - Exposure during pregnancy [Unknown]
